FAERS Safety Report 8919445 (Version 1)
Quarter: 2012Q4

REPORT INFORMATION
  Report Type: Spontaneous
  Country: IT (occurrence: None)
  Receive Date: 20121114
  Receipt Date: 20121114
  Transmission Date: 20130627
  Serious: Yes (Other)
  Sender: FDA-Public Use
  Company Number: VAL_00991_2012

PATIENT
  Age: 61 Year
  Sex: Male

DRUGS (2)
  1. ZINADIUR [Suspect]
     Indication: HYPERTENSION
     Dosage: (DF)
     Route: 048
     Dates: start: 20100210, end: 20121012
  2. LIBRADIN [Concomitant]

REACTIONS (2)
  - Lip oedema [None]
  - Blood pressure increased [None]
